FAERS Safety Report 10599510 (Version 2)
Quarter: 2014Q4

REPORT INFORMATION
  Report Type: Report from Study
  Country: IT (occurrence: IT)
  Receive Date: 20141121
  Receipt Date: 20141125
  Transmission Date: 20150529
  Serious: Yes (Death)
  Sender: FDA-Public Use
  Company Number: IT-009507513-1411ITA008013

PATIENT
  Age: 48 Year
  Sex: Male

DRUGS (3)
  1. HYDROCHLOROTHIAZIDE (+) ZOFENOPRIL CALCIUM [Concomitant]
     Indication: HYPERTENSION
     Dosage: 1 CP, QD
     Route: 048
     Dates: start: 2012
  2. PEMBROLIZUMAB. [Suspect]
     Active Substance: PEMBROLIZUMAB
     Dosage: 2 MG/KG, Q3W
     Route: 042
     Dates: start: 20141030, end: 20141030
  3. PEMBROLIZUMAB. [Suspect]
     Active Substance: PEMBROLIZUMAB
     Indication: METASTATIC MALIGNANT MELANOMA
     Dosage: 2 MG/KG, Q3W
     Route: 042
     Dates: start: 20141009, end: 20141009

REACTIONS (1)
  - Cerebral haemorrhage [Fatal]

NARRATIVE: CASE EVENT DATE: 20141109
